FAERS Safety Report 5811582-7 (Version None)
Quarter: 2008Q3

REPORT INFORMATION
  Report Type: 
  Country: None (occurrence: None)
  Receive Date: 20080716
  Receipt Date: 20080709
  Transmission Date: 20090109
  Serious: Yes (Hospitalization)
  Sender: FDA-Public Use
  Company Number: ES-MERCK-0807ESP00016

PATIENT
  Age: 60 Year
  Sex: Female

DRUGS (1)
  1. TRUSOPT [Suspect]
     Indication: GLAUCOMA
     Route: 047
     Dates: start: 20070101, end: 20080501

REACTIONS (2)
  - HEPATITIS [None]
  - HYPERBILIRUBINAEMIA [None]
